FAERS Safety Report 19323084 (Version 5)
Quarter: 2021Q3

REPORT INFORMATION
  Report Type: Spontaneous
  Country: US (occurrence: US)
  Receive Date: 20210528
  Receipt Date: 20210903
  Transmission Date: 20211014
  Serious: Yes (Other)
  Sender: FDA-Public Use
  Company Number: US-SA-2021SA174630

PATIENT
  Age: 10 Year
  Sex: Male
  Weight: 63.49 kg

DRUGS (19)
  1. HEPARIN [Concomitant]
     Active Substance: HEPARIN SODIUM
  2. MAGNESIUM [Concomitant]
     Active Substance: MAGNESIUM
  3. LUMIZYME [Suspect]
     Active Substance: ALGLUCOSIDASE ALFA
     Indication: MUCOPOLYSACCHARIDOSIS
     Dosage: 17.65 MG/KG, QOW
     Route: 042
     Dates: start: 2021
  4. ACETAMINOPHEN. [Concomitant]
     Active Substance: ACETAMINOPHEN
  5. LIDOCAINE/PRILOCAINE [Concomitant]
     Active Substance: LIDOCAINE\PRILOCAINE
  6. POTASSIUM [Concomitant]
     Active Substance: POTASSIUM
  7. RISPERIDONE. [Concomitant]
     Active Substance: RISPERIDONE
  8. DEXMETHYLPHENIDATE [Concomitant]
     Active Substance: DEXMETHYLPHENIDATE HYDROCHLORIDE
  9. CLONIDINE. [Concomitant]
     Active Substance: CLONIDINE
  10. NORMAL SALINE [Concomitant]
     Active Substance: SODIUM CHLORIDE
  11. LUMIZYME [Suspect]
     Active Substance: ALGLUCOSIDASE ALFA
     Indication: GLYCOGEN STORAGE DISEASE TYPE II
     Dosage: 1200 MG, QOW
     Route: 042
     Dates: start: 20210122
  12. STERILE WATER [Concomitant]
     Active Substance: WATER
  13. GABAPENTIN. [Concomitant]
     Active Substance: GABAPENTIN
  14. EPINEPHRINE. [Concomitant]
     Active Substance: EPINEPHRINE
  15. DEXMETHYLPHENIDATE [Concomitant]
     Active Substance: DEXMETHYLPHENIDATE HYDROCHLORIDE
  16. DEXMETHYLPHENIDATE HCL [Concomitant]
     Active Substance: DEXMETHYLPHENIDATE HYDROCHLORIDE
  17. DIPHENHYDRAMINE. [Concomitant]
     Active Substance: DIPHENHYDRAMINE
  18. DIPHENHYDRAMINE. [Concomitant]
     Active Substance: DIPHENHYDRAMINE
  19. BACLOFEN. [Concomitant]
     Active Substance: BACLOFEN

REACTIONS (7)
  - Thrombosis [Unknown]
  - General anaesthesia [Unknown]
  - Hypersensitivity [Unknown]
  - Product preparation issue [Unknown]
  - Pruritus [Unknown]
  - Swelling [Unknown]
  - Dry skin [Unknown]

NARRATIVE: CASE EVENT DATE: 20210423
